FAERS Safety Report 7455139-3 (Version None)
Quarter: 2011Q2

REPORT INFORMATION
  Report Type: 
  Country: None (occurrence: None)
  Receive Date: 20110503
  Receipt Date: 20110419
  Transmission Date: 20111010
  Serious: Yes (Other)
  Sender: FDA-Public Use
  Company Number: SE-MYLANLABS-2011S1008007

PATIENT
  Sex: Female

DRUGS (9)
  1. CLOMIPRAMINE [Suspect]
     Indication: BIPOLAR DISORDER
  2. CLOMIPRAMINE [Suspect]
  3. BIPERIDEN [Concomitant]
     Indication: PRODUCT USED FOR UNKNOWN INDICATION
  4. LAMICTAL [Concomitant]
     Indication: PRODUCT USED FOR UNKNOWN INDICATION
  5. CLOMIPRAMINE [Suspect]
  6. NOZINAN [Concomitant]
     Indication: PRODUCT USED FOR UNKNOWN INDICATION
  7. CLOMIPRAMINE [Suspect]
     Indication: DEPRESSION
  8. HALDOL [Concomitant]
     Indication: PRODUCT USED FOR UNKNOWN INDICATION
  9. ZOPIKLON [Concomitant]
     Indication: PRODUCT USED FOR UNKNOWN INDICATION

REACTIONS (3)
  - MANIA [None]
  - SLEEP DISORDER [None]
  - NIGHTMARE [None]
